FAERS Safety Report 11870279 (Version 1)
Quarter: 2015Q4

REPORT INFORMATION
  Report Type: Spontaneous
  Country: NL (occurrence: NL)
  Receive Date: 20151228
  Receipt Date: 20151228
  Transmission Date: 20160305
  Serious: Yes (Hospitalization)
  Sender: FDA-Public Use
  Company Number: PHHY2015NL167501

PATIENT

DRUGS (4)
  1. SANDIMMUN [Suspect]
     Active Substance: CYCLOSPORINE
     Indication: STEM CELL TRANSPLANT
     Dosage: 150 MG, BID
     Route: 042
  2. PROPOFOL. [Concomitant]
     Active Substance: PROPOFOL
     Indication: PRODUCT USED FOR UNKNOWN INDICATION
     Route: 065
  3. SANDIMMUN [Suspect]
     Active Substance: CYCLOSPORINE
     Dosage: UNK
     Route: 065
  4. SANDIMMUN [Suspect]
     Active Substance: CYCLOSPORINE
     Dosage: 100 MG, BID
     Route: 042

REACTIONS (5)
  - Respiratory failure [Unknown]
  - Infection [Unknown]
  - Immunosuppressant drug level increased [Recovered/Resolved]
  - Blood lactate dehydrogenase increased [Unknown]
  - Blood triglycerides increased [Recovered/Resolved]
